FAERS Safety Report 8801639 (Version 1)
Quarter: 2012Q4

REPORT INFORMATION
  Report Type: 
  Country: US (occurrence: US)
  Receive Date: 20120921
  Receipt Date: 20120921
  Transmission Date: 20130627
  Serious: Yes (Hospitalization)
  Sender: FDA-Public Use
  Company Number: US-BAYER-2012-097090

PATIENT
  Age: 25 Year
  Sex: Female
  Weight: 126.98 kg

DRUGS (3)
  1. YAZ [Suspect]
     Indication: CONTRACEPTION
     Dosage: UNK
     Dates: start: 201008, end: 201011
  2. BENADRYL [Concomitant]
  3. PERCOCET [Concomitant]

REACTIONS (1)
  - Pulmonary embolism [None]
